FAERS Safety Report 5619751-6 (Version None)
Quarter: 2008Q1

REPORT INFORMATION
  Report Type: 
  Country: None (occurrence: None)
  Receive Date: 20080208
  Receipt Date: 20071211
  Transmission Date: 20080703
  Serious: No
  Sender: FDA-Public Use
  Company Number: A0698337A

PATIENT
  Age: 13 Year
  Sex: Male

DRUGS (2)
  1. ALTABAX [Suspect]
     Indication: IMPETIGO
     Dosage: 1APP THREE TIMES PER DAY
     Route: 061
     Dates: start: 20071207
  2. BENZACLIN [Concomitant]

REACTIONS (1)
  - RASH GENERALISED [None]
